FAERS Safety Report 9820993 (Version 2)
Quarter: 2014Q1

REPORT INFORMATION
  Report Type: Report from Study
  Country: CA (occurrence: CA)
  Receive Date: 20140116
  Receipt Date: 20140116
  Transmission Date: 20141002
  Serious: Yes (Hospitalization, Other)
  Sender: FDA-Public Use
  Company Number: CA-BRISTOL-MYERS SQUIBB COMPANY-17343831

PATIENT
  Age: 66 Year
  Sex: Female
  Weight: 73.47 kg

DRUGS (2)
  1. ORENCIA [Suspect]
     Indication: RHEUMATOID ARTHRITIS
     Dosage: BATCH NO: 3J78953?EXP.DATE: JUL-2016?ONGOING
     Route: 042
     Dates: start: 20081218
  2. PREDNISONE [Concomitant]

REACTIONS (2)
  - Pneumonia [Recovering/Resolving]
  - Myocardial infarction [Unknown]
